FAERS Safety Report 9456115 (Version 1)
Quarter: 2013Q3

REPORT INFORMATION
  Report Type: Spontaneous
  Country: RO (occurrence: RO)
  Receive Date: 20130813
  Receipt Date: 20130813
  Transmission Date: 20140515
  Serious: Yes (Life-Threatening, Hospitalization, Disabling, Other)
  Sender: FDA-Public Use
  Company Number: RO-ABBOTT-13P-135-1131707-00

PATIENT
  Age: 66 Year
  Sex: Male
  Weight: 42 kg

DRUGS (2)
  1. HUMIRA [Suspect]
     Indication: PSORIATIC ARTHROPATHY
     Route: 058
     Dates: start: 201302, end: 20130530
  2. MEDROL [Concomitant]
     Indication: PSORIATIC ARTHROPATHY
     Route: 048
     Dates: start: 200804

REACTIONS (21)
  - Kyphosis [Unknown]
  - Cardiac failure congestive [Unknown]
  - Hypertension [Unknown]
  - Prostate cancer metastatic [Unknown]
  - Prostate cancer [Unknown]
  - Weight decreased [Unknown]
  - Back pain [Unknown]
  - Arthralgia [Unknown]
  - Herpes zoster [Unknown]
  - General physical condition abnormal [Unknown]
  - Anxiety [Unknown]
  - Pallor [Unknown]
  - Hypotonia [Unknown]
  - Muscle tone disorder [Unknown]
  - Joint range of motion decreased [Unknown]
  - Cubital tunnel syndrome [Unknown]
  - Urinary retention [Unknown]
  - Haematuria [Unknown]
  - Urinary tract infection [Unknown]
  - Angina pectoris [Unknown]
  - Mucosal discolouration [Unknown]
